FAERS Safety Report 6282207-4 (Version None)
Quarter: 2009Q3

REPORT INFORMATION
  Report Type: 
  Country: None (occurrence: None)
  Receive Date: 20090724
  Receipt Date: 20090713
  Transmission Date: 20100115
  Serious: Yes (Hospitalization)
  Sender: FDA-Public Use
  Company Number: GB-PFIZER INC-2009220035

PATIENT
  Age: 75 Year

DRUGS (5)
  1. PEGVISOMANT [Suspect]
     Indication: ACROMEGALY
     Dosage: 10 MG, 1X/DAY
     Dates: start: 20070101
  2. ATENOLOL [Concomitant]
     Dosage: UNK
     Dates: start: 20080107
  3. NICORANDIL [Concomitant]
     Dosage: UNK
     Dates: start: 20080107
  4. ACETYLSALICYLIC ACID [Concomitant]
     Dosage: UNK
     Dates: start: 20080107
  5. FRUSEMIDE [Concomitant]
     Dosage: UNK
     Dates: start: 20080107

REACTIONS (2)
  - DACRYOSTENOSIS ACQUIRED [None]
  - HAEMORRHAGE [None]
